FAERS Safety Report 18658158 (Version 1)
Quarter: 2020Q4

REPORT INFORMATION
  Report Type: Spontaneous
  Country: PT (occurrence: PT)
  Receive Date: 20201223
  Receipt Date: 20201223
  Transmission Date: 20210114
  Serious: Yes (Other)
  Sender: FDA-Public Use
  Company Number: PT-MYLANLABS-2020M1104277

PATIENT
  Age: 45 Year
  Sex: Female
  Weight: 57.2 kg

DRUGS (6)
  1. PERTUZUMAB. [Suspect]
     Active Substance: PERTUZUMAB
     Indication: HER2 POSITIVE BREAST CANCER
     Dosage: LOADING DOSE 840 MG (17 CYCLES)
     Route: 042
  2. PEGFILGRASTIM [Concomitant]
     Active Substance: PEGFILGRASTIM
     Indication: HER2 POSITIVE BREAST CANCER
     Dosage: 6 MILLIGRAM, BIWEEKLY
     Route: 058
  3. TRASTUZUMAB. [Suspect]
     Active Substance: TRASTUZUMAB
     Indication: HER2 POSITIVE BREAST CANCER
     Dosage: LOADING DOSE 8 MG.KG (17 CYCLES)
     Route: 058
  4. EPIRUBICIN [Concomitant]
     Active Substance: EPIRUBICIN
     Indication: HER2 POSITIVE BREAST CANCER
     Dosage: 100 MILLIGRAM/SQ. METER
  5. CYCLOPHOSPHAMIDE. [Concomitant]
     Active Substance: CYCLOPHOSPHAMIDE
     Indication: HER2 POSITIVE BREAST CANCER
     Dosage: 600 MILLIGRAM/SQ. METER, QW
  6. PACLITAXEL. [Suspect]
     Active Substance: PACLITAXEL
     Indication: HER2 POSITIVE BREAST CANCER
     Dosage: 80 MILLIGRAM/SQ. METER, QW
     Route: 065

REACTIONS (2)
  - Leukopenia [Unknown]
  - Osteoporosis [Unknown]

NARRATIVE: CASE EVENT DATE: 2020
